FAERS Safety Report 5540824-0 (Version None)
Quarter: 2007Q4

REPORT INFORMATION
  Report Type: 
  Country: None (occurrence: None)
  Receive Date: 20071129
  Receipt Date: 20070801
  Transmission Date: 20080405
  Serious: Yes (Other)
  Sender: FDA-Public Use
  Company Number: US200703003949

PATIENT
  Age: 41 Year
  Sex: Female
  Weight: 119.3 kg

DRUGS (7)
  1. ZYPREXA [Suspect]
     Dosage: 10 MG,; 80 MG,
     Dates: start: 19990101, end: 20050101
  2. RISPERIDONE [Concomitant]
  3. GEODON [Concomitant]
  4. WELLBUTRIN [Concomitant]
  5. PROZAC [Concomitant]
  6. REMERON [Concomitant]
  7. PREDNISONE TAB [Concomitant]

REACTIONS (5)
  - DIABETES MELLITUS [None]
  - METABOLIC DISORDER [None]
  - OVERDOSE [None]
  - PANCREATITIS [None]
  - WEIGHT DECREASED [None]
